FAERS Safety Report 8232412-2 (Version None)
Quarter: 2012Q1

REPORT INFORMATION
  Report Type: 
  Country: None (occurrence: None)
  Receive Date: 20120323
  Receipt Date: 20120315
  Transmission Date: 20120608
  Serious: Yes (Hospitalization)
  Sender: FDA-Public Use
  Company Number: JP-CUBIST-2012S1000292

PATIENT
  Age: 83 Year
  Sex: Male

DRUGS (4)
  1. VANCOMYCIN [Concomitant]
     Indication: DECUBITUS ULCER
     Dosage: DAILY DOSAGE UNKNOWN DOSE UNIT:U
     Route: 051
     Dates: end: 20120308
  2. AMINO ACIDS NOS W/CARBOHYD. NOS/ELECTROL. NOS [Concomitant]
     Indication: PRODUCT USED FOR UNKNOWN INDICATION
     Dosage: DOSE UNIT:U
     Route: 051
  3. CUBICIN [Suspect]
     Indication: DECUBITUS ULCER
     Route: 041
     Dates: start: 20120308
  4. PREDNISOLONE ACETATE [Concomitant]
     Indication: PRODUCT USED FOR UNKNOWN INDICATION
     Route: 065
     Dates: start: 20120308, end: 20120314

REACTIONS (1)
  - HEPATIC FUNCTION ABNORMAL [None]
